FAERS Safety Report 24732851 (Version 1)
Quarter: 2024Q4

REPORT INFORMATION
  Report Type: Report from Study
  Country: JP (occurrence: JP)
  Receive Date: 20241213
  Receipt Date: 20241213
  Transmission Date: 20250115
  Serious: Yes (Other)
  Sender: ALEXION PHARMACEUTICALS
  Company Number: JP-ASTRAZENECA-230039972_013120_P_1

PATIENT
  Age: 49 Year
  Weight: 49 kg

DRUGS (8)
  1. DURVALUMAB [Suspect]
     Active Substance: DURVALUMAB
     Indication: Hepatocellular carcinoma
     Dosage: 1500 MILLIGRAM, UNK
  2. DURVALUMAB [Suspect]
     Active Substance: DURVALUMAB
     Dosage: 1500 MILLIGRAM, UNK
     Route: 042
  3. DURVALUMAB [Suspect]
     Active Substance: DURVALUMAB
     Dosage: 1500 MILLIGRAM, UNK
  4. DURVALUMAB [Suspect]
     Active Substance: DURVALUMAB
     Dosage: 1500 MILLIGRAM, UNK
     Route: 042
  5. TREMELIMUMAB [Suspect]
     Active Substance: TREMELIMUMAB
     Indication: Hepatocellular carcinoma
     Dosage: 300 MILLIGRAM
  6. TREMELIMUMAB [Suspect]
     Active Substance: TREMELIMUMAB
     Dosage: 300 MILLIGRAM
     Route: 041
  7. TREMELIMUMAB [Suspect]
     Active Substance: TREMELIMUMAB
     Dosage: 300 MILLIGRAM
  8. TREMELIMUMAB [Suspect]
     Active Substance: TREMELIMUMAB
     Dosage: 300 MILLIGRAM
     Route: 041

REACTIONS (2)
  - Liver disorder [Recovering/Resolving]
  - Renal disorder [Recovered/Resolved]
